FAERS Safety Report 17422748 (Version 2)
Quarter: 2020Q2

REPORT INFORMATION
  Report Type: Spontaneous
  Country: GR (occurrence: GR)
  Receive Date: 20200215
  Receipt Date: 20200624
  Transmission Date: 20200713
  Serious: Yes (Hospitalization, Other)
  Sender: FDA-Public Use
  Company Number: GR-VISTAPHARM, INC.-VER202002-000264

PATIENT
  Age: 33 Year
  Sex: Female

DRUGS (2)
  1. PREDNISOLONE. [Suspect]
     Active Substance: PREDNISOLONE
     Indication: PEMPHIGUS
     Dosage: UP TO 30 MG/DAY
     Route: 048
  2. HEPARIN [Concomitant]
     Active Substance: HEPARIN SODIUM
     Indication: FACTOR V LEIDEN MUTATION
     Dosage: UNKNOWN

REACTIONS (2)
  - Exposure during pregnancy [Unknown]
  - Uterine rupture [Recovered/Resolved]
